FAERS Safety Report 5917280-3 (Version None)
Quarter: 2008Q4

REPORT INFORMATION
  Report Type: 
  Country: None (occurrence: None)
  Receive Date: 20081014
  Receipt Date: 20080930
  Transmission Date: 20090506
  Serious: Yes (Disabling, Other)
  Sender: FDA-Public Use
  Company Number: US-ELI_LILLY_AND_COMPANY-US200807004611

PATIENT
  Sex: Female

DRUGS (17)
  1. FORTEO [Suspect]
     Dosage: UNK, UNKNOWN
     Dates: start: 20070208
  2. LISINOPRIL [Concomitant]
  3. METHOTREXATE [Concomitant]
  4. SIMVASTATIN [Concomitant]
  5. FLUOXETINE HYDROCHLORIDE [Concomitant]
  6. METAMUCIL [Concomitant]
  7. METOPROLOL TARTRATE [Concomitant]
  8. TOPROL-XL [Concomitant]
  9. MULTI-VITAMIN [Concomitant]
  10. FAMOTIDINE [Concomitant]
  11. IMODIUM [Concomitant]
  12. VICODIN [Concomitant]
  13. CERTAGEN [Concomitant]
  14. CALCIUM [Concomitant]
  15. LIPITOR [Concomitant]
  16. PLAVIX [Concomitant]
  17. ASPIRIN [Concomitant]
     Dosage: 81 MG, DAILY (1/D)

REACTIONS (7)
  - ATROPHY OF GLOBE [None]
  - BLINDNESS UNILATERAL [None]
  - CORNEAL THINNING [None]
  - KERATOPLASTY [None]
  - ULCERATIVE KERATITIS [None]
  - VITRECTOMY [None]
  - WOUND DEHISCENCE [None]
